FAERS Safety Report 5200879-X (Version None)
Quarter: 2007Q1

REPORT INFORMATION
  Report Type: 
  Country: None (occurrence: None)
  Receive Date: 20070103
  Receipt Date: 20061218
  Transmission Date: 20070707
  Serious: Yes (Death, Other)
  Sender: FDA-Public Use
  Company Number: 2006EU002997

PATIENT
  Age: 9 Year
  Sex: Male
  Weight: 37.2 kg

DRUGS (6)
  1. TACROLIMUS (TACROLIMUS)CAPSULE [Suspect]
     Indication: RENAL TRANSPLANT
     Dosage: SEE IMAGE
     Route: 048
     Dates: end: 20061026
  2. TACROLIMUS (TACROLIMUS)CAPSULE [Suspect]
     Indication: RENAL TRANSPLANT
     Dosage: SEE IMAGE
     Route: 048
     Dates: start: 20030121
  3. VORICONAZOLE [Concomitant]
  4. PREDNISOLONE [Concomitant]
  5. OMEPRAZOLE [Concomitant]
  6. CALCIUM D SANDOZ (COLECALCIFEROL, CALCIUM) [Concomitant]

REACTIONS (12)
  - FUNGAL INFECTION [None]
  - GENERAL PHYSICAL HEALTH DETERIORATION [None]
  - HAEMODIALYSIS [None]
  - HAEMORRHAGE [None]
  - HYPOTENSION [None]
  - IMMUNOSUPPRESSANT DRUG LEVEL INCREASED [None]
  - LEUKOPENIA [None]
  - LYMPHOPROLIFERATIVE DISORDER [None]
  - POOR PERIPHERAL CIRCULATION [None]
  - PUPIL FIXED [None]
  - PYREXIA [None]
  - TACHYCARDIA [None]
